FAERS Safety Report 8580592-1 (Version None)
Quarter: 2012Q3

REPORT INFORMATION
  Report Type: 
  Country: None (occurrence: None)
  Receive Date: 20120809
  Receipt Date: 20120807
  Transmission Date: 20120928
  Serious: Yes (Hospitalization)
  Sender: FDA-Public Use
  Company Number: DE-AMGEN-DEUSP2012049145

PATIENT
  Age: 27 Year
  Sex: Male
  Weight: 81 kg

DRUGS (2)
  1. NEUPOGEN [Suspect]
     Dosage: UNK
     Route: 058
     Dates: start: 20120217, end: 20120220
  2. NEUPOGEN [Suspect]
     Indication: HAEMATOPOIETIC STEM CELL MOBILISATION
     Dosage: UNK
     Route: 058
     Dates: start: 20120217, end: 20120220

REACTIONS (2)
  - PRURITUS [None]
  - RASH GENERALISED [None]
